FAERS Safety Report 13418573 (Version 1)
Quarter: 2017Q2

REPORT INFORMATION
  Report Type: Spontaneous
  Country: ES (occurrence: ES)
  Receive Date: 20170406
  Receipt Date: 20170406
  Transmission Date: 20170830
  Serious: Yes (Hospitalization, Other)
  Sender: FDA-Public Use
  Company Number: ES-IMPAX LABORATORIES, INC-2017-IPXL-00899

PATIENT
  Age: 66 Year
  Sex: Female

DRUGS (8)
  1. CARBIDOPA-LEVODOPA ER [Suspect]
     Active Substance: CARBIDOPA\LEVODOPA
     Dosage: LOWER DOSE; 450 MG/DAY
     Route: 050
  2. SAFINAMIDE [Suspect]
     Active Substance: SAFINAMIDE
     Indication: PARKINSON^S DISEASE
     Dosage: 100 MG, DAILY
     Route: 048
  3. CARBIDOPA-LEVODOPA ER [Suspect]
     Active Substance: CARBIDOPA\LEVODOPA
     Indication: PARKINSON^S DISEASE
     Dosage: 362.5/1450 MG, DAILY; ENTERAL INFUSION
     Route: 050
  4. CARBIDOPA-LEVODOPA ER [Suspect]
     Active Substance: CARBIDOPA\LEVODOPA
     Dosage: LOWER LEVODOPA EQUIVALENT DOSE, UNK
     Route: 050
  5. CARBIDOPA-LEVODOPA ER [Suspect]
     Active Substance: CARBIDOPA\LEVODOPA
     Dosage: LOWERING DOSE, UNK
     Route: 050
  6. ROPINIROLE HYDROCHLORIDE. [Suspect]
     Active Substance: ROPINIROLE HYDROCHLORIDE
     Indication: RESTLESS LEGS SYNDROME
     Dosage: 8 MG, DAILY
     Route: 048
  7. SAFINAMIDE [Suspect]
     Active Substance: SAFINAMIDE
     Dosage: UNK
     Route: 065
  8. AMANTADINE. [Suspect]
     Active Substance: AMANTADINE HYDROCHLORIDE
     Indication: PARKINSON^S DISEASE
     Dosage: 200 MG, DAILY
     Route: 048

REACTIONS (2)
  - Parkinsonism hyperpyrexia syndrome [Recovered/Resolved]
  - Restless legs syndrome [Unknown]
